FAERS Safety Report 13996704 (Version 2)
Quarter: 2017Q3

REPORT INFORMATION
  Report Type: Report from Study
  Country: US (occurrence: US)
  Receive Date: 20170921
  Receipt Date: 20170926
  Transmission Date: 20171128
  Serious: Yes (Hospitalization)
  Sender: FDA-Public Use
  Company Number: US-ROCHE-1969963

PATIENT
  Age: 78 Year
  Sex: Male
  Weight: 68.9 kg

DRUGS (2)
  1. RO 5509554 (CSF-1R MAB) [Suspect]
     Active Substance: EMACTUZUMAB
     Indication: TRANSITIONAL CELL CARCINOMA
     Dosage: MOST RECENT DOSE PRIOR TO EPISODES OF SYNCOPE AND AGITATION ONSET: 29/JUN/2017 (THE LAST DOSE)?PERMA
     Route: 042
     Dates: start: 20170608, end: 20170629
  2. ATEZOLIZUMAB. [Suspect]
     Active Substance: ATEZOLIZUMAB
     Indication: TRANSITIONAL CELL CARCINOMA
     Dosage: MOST RECENT DOSE PRIOR TO EPISODES OF SYNCOPE AND AGITATION ONSET: 29/JUN/2017 (THE LAST DOSE)?FIXED
     Route: 042
     Dates: start: 20170608, end: 20170629

REACTIONS (2)
  - Syncope [Recovering/Resolving]
  - Agitation [Recovered/Resolved]

NARRATIVE: CASE EVENT DATE: 20170725
